FAERS Safety Report 17188423 (Version 2)
Quarter: 2020Q1

REPORT INFORMATION
  Report Type: Spontaneous
  Country: US (occurrence: US)
  Receive Date: 20191222
  Receipt Date: 20200109
  Transmission Date: 20200409
  Serious: No
  Sender: FDA-Public Use
  Company Number: US-LEXICON PHARMACEUTICALS, INC-19-1606-01111

PATIENT
  Sex: Female

DRUGS (4)
  1. ANTIBIOTIC [Concomitant]
     Active Substance: UNSPECIFIED INGREDIENT
  2. XERMELO [Suspect]
     Active Substance: TELOTRISTAT ETHYL
     Dates: start: 2019, end: 201912
  3. XERMELO [Suspect]
     Active Substance: TELOTRISTAT ETHYL
     Indication: CARCINOID TUMOUR OF THE GASTROINTESTINAL TRACT
     Dosage: 2 OR 3 TIMES DAILY AS NEEDED FOR DIARRHEA
     Dates: start: 20191118, end: 2019
  4. XERMELO [Suspect]
     Active Substance: TELOTRISTAT ETHYL
     Dates: start: 201912

REACTIONS (3)
  - Off label use [Not Recovered/Not Resolved]
  - Pain [Unknown]
  - Flushing [Not Recovered/Not Resolved]

NARRATIVE: CASE EVENT DATE: 2019
